FAERS Safety Report 4390655-2 (Version None)
Quarter: 2004Q3

REPORT INFORMATION
  Report Type: 
  Country: None (occurrence: None)
  Receive Date: 20040706
  Receipt Date: 20040628
  Transmission Date: 20050211
  Serious: Yes (Hospitalization, Other)
  Sender: FDA-Public Use
  Company Number: HU-MERCK-0406HUN00026

PATIENT
  Age: 62 Year
  Sex: Female
  Weight: 67 kg

DRUGS (10)
  1. ASPIRIN [Concomitant]
     Route: 048
  2. ATORVASTATIN CALCIUM [Concomitant]
     Indication: HYPERLIPIDAEMIA
     Route: 048
     Dates: start: 20030101
  3. ATORVASTATIN CALCIUM [Concomitant]
     Indication: DIABETES MELLITUS
     Route: 048
     Dates: start: 20030101
  4. ENALAPRIL MALEATE [Concomitant]
     Route: 048
  5. LEVOTHYROXINE SODIUM [Concomitant]
     Route: 048
  6. NITROGLYCERIN [Concomitant]
     Route: 048
  7. ZOCOR [Suspect]
     Indication: HYPERLIPIDAEMIA
     Route: 048
     Dates: start: 20031101, end: 20031206
  8. ZOCOR [Suspect]
     Route: 048
     Dates: start: 20000101, end: 20031101
  9. ZOCOR [Suspect]
     Indication: DIABETES MELLITUS
     Route: 048
     Dates: start: 20031101, end: 20031206
  10. ZOCOR [Suspect]
     Route: 048
     Dates: start: 20000101, end: 20031101

REACTIONS (3)
  - ANURIA [None]
  - HYPERGLYCAEMIA [None]
  - RHABDOMYOLYSIS [None]
